FAERS Safety Report 6098968-3 (Version None)
Quarter: 2009Q1

REPORT INFORMATION
  Report Type: 
  Country: None (occurrence: None)
  Receive Date: 20090302
  Receipt Date: 20090226
  Transmission Date: 20090719
  Serious: Yes (Hospitalization)
  Sender: FDA-Public Use
  Company Number: US-ASTRAZENECA-2009UW05395

PATIENT
  Age: 67 Year
  Sex: Female
  Weight: 68 kg

DRUGS (2)
  1. PRILOSEC OTC [Suspect]
     Route: 048
  2. ELAVIL [Concomitant]

REACTIONS (1)
  - ILL-DEFINED DISORDER [None]
